FAERS Safety Report 15536233 (Version 1)
Quarter: 2018Q4

REPORT INFORMATION
  Report Type: Spontaneous
  Country: US (occurrence: US)
  Receive Date: 20181022
  Receipt Date: 20181022
  Transmission Date: 20190205
  Serious: No
  Sender: FDA-Public Use
  Company Number: US-PFIZER INC-2018420793

PATIENT
  Age: 83 Year
  Sex: Female
  Weight: 60.33 kg

DRUGS (1)
  1. LYRICA [Suspect]
     Active Substance: PREGABALIN
     Indication: ARTHRITIS
     Dosage: 50 MG, UNK (TAKES 50MG AT A TIME)

REACTIONS (3)
  - Condition aggravated [Unknown]
  - Drug effective for unapproved indication [Unknown]
  - Circumstance or information capable of leading to medication error [Unknown]
